FAERS Safety Report 5853394-4 (Version None)
Quarter: 2008Q3

REPORT INFORMATION
  Report Type: 
  Country: None (occurrence: None)
  Receive Date: 20080821
  Receipt Date: 20080811
  Transmission Date: 20090109
  Serious: Yes (Other)
  Sender: FDA-Public Use
  Company Number: CZ-PFIZER INC-2008067769

PATIENT
  Age: 33 Year
  Sex: Female

DRUGS (2)
  1. DOSTINEX [Suspect]
     Indication: HYPERPROLACTINAEMIA
     Route: 048
  2. NIMESIL [Concomitant]
     Route: 048

REACTIONS (2)
  - SYNCOPE [None]
  - TOOTH FRACTURE [None]
